FAERS Safety Report 9180811 (Version 2)
Quarter: 2013Q2

REPORT INFORMATION
  Report Type: Spontaneous
  Country: US (occurrence: None)
  Receive Date: 20130320
  Receipt Date: 20130501
  Transmission Date: 20140414
  Serious: Yes (Hospitalization)
  Sender: FDA-Public Use
  Company Number: AUR-APL-2013-02424

PATIENT
  Age: 70 Year
  Sex: Male
  Weight: 88.43 kg

DRUGS (6)
  1. LISINOPRIL [Suspect]
     Indication: PRODUCT USED FOR UNKNOWN INDICATION
     Dosage: UNKNOWN
  2. CELEBREX (CELECOXIB) [Suspect]
     Indication: ARTHRITIS
     Dosage: (200 MG, AS REQUIRED), UNKNOWN
     Dates: start: 2012
  3. CELEBREX (CELECOXIB) [Suspect]
     Indication: PAIN
     Dosage: (200 MG, AS REQUIRED), UNKNOWN
     Dates: start: 2012
  4. LIPITOR (ATORVASTATIN CALCIUM) [Suspect]
     Indication: BLOOD CHOLESTEROL ABNORMAL
     Dosage: 40 MG (40 MG, 1 IN 1 D), UNKNOWN
  5. RAPAFLO (SILODOSIN) [Suspect]
     Indication: PRODUCT USED FOR UNKNOWN INDICATION
     Dosage: UNKNOWN
  6. FLOMAX (MORNIFLUMATE) [Suspect]
     Indication: PRODUCT USED FOR UNKNOWN INDICATION

REACTIONS (3)
  - Pruritus [None]
  - Erythema [None]
  - Loss of consciousness [None]
